FAERS Safety Report 11463920 (Version 1)
Quarter: 2015Q3

REPORT INFORMATION
  Report Type: Spontaneous
  Country: US (occurrence: US)
  Receive Date: 20150831
  Receipt Date: 20150831
  Transmission Date: 20151125
  Serious: No
  Sender: FDA-Public Use
  Company Number: US-ELI_LILLY_AND_COMPANY-US201105004721

PATIENT
  Age: 51 Year
  Sex: Female
  Weight: 90.7 kg

DRUGS (13)
  1. SYNTHROID [Concomitant]
     Active Substance: LEVOTHYROXINE SODIUM
  2. KLOR-CON [Concomitant]
     Active Substance: POTASSIUM CHLORIDE
  3. AMITIZA [Concomitant]
     Active Substance: LUBIPROSTONE
  4. ZOFRAN [Concomitant]
     Active Substance: ONDANSETRON HYDROCHLORIDE
  5. VITAMIN D [Concomitant]
     Active Substance: CHOLECALCIFEROL
  6. TORADOL [Concomitant]
     Active Substance: KETOROLAC TROMETHAMINE
  7. CYMBALTA [Suspect]
     Active Substance: DULOXETINE HYDROCHLORIDE
     Dosage: UNK
     Dates: end: 201103
  8. EXFORGE [Concomitant]
     Active Substance: AMLODIPINE BESYLATE\VALSARTAN
  9. SUMATRIPTAN. [Concomitant]
     Active Substance: SUMATRIPTAN
     Dosage: 6 MG, UNK
  10. KEPPRA [Concomitant]
     Active Substance: LEVETIRACETAM
  11. TOPAMAX [Concomitant]
     Active Substance: TOPIRAMATE
  12. AMITRIPTYLINE [Concomitant]
     Active Substance: AMITRIPTYLINE
  13. MAGNESIUM                          /00669701/ [Concomitant]

REACTIONS (2)
  - Vitreous floaters [Recovering/Resolving]
  - Sinusitis [Unknown]

NARRATIVE: CASE EVENT DATE: 201103
